FAERS Safety Report 4980795-9 (Version None)
Quarter: 2006Q2

REPORT INFORMATION
  Report Type: 
  Country: None (occurrence: None)
  Receive Date: 20060424
  Receipt Date: 20051114
  Transmission Date: 20061013
  Serious: Yes (Disabling)
  Sender: FDA-Public Use
  Company Number: US-MERCK-0511USA02654

PATIENT
  Age: 41 Year
  Sex: Female
  Weight: 77 kg

DRUGS (7)
  1. VIOXX [Suspect]
     Indication: ARTHRITIS
     Route: 048
     Dates: start: 20020701, end: 20021001
  2. ZOLOFT [Concomitant]
     Indication: DEPRESSION
     Route: 065
     Dates: start: 20021018
  3. PAXIL [Concomitant]
     Indication: DEPRESSION
     Route: 065
     Dates: start: 20021018
  4. TENORMIN [Concomitant]
     Route: 065
  5. HYDRACORT [Concomitant]
     Route: 065
  6. ASPIRIN [Concomitant]
     Route: 065
  7. LOTREL [Concomitant]
     Route: 065

REACTIONS (13)
  - ANHEDONIA [None]
  - ANXIETY [None]
  - CARDIAC FAILURE CONGESTIVE [None]
  - CARDIOVASCULAR DISORDER [None]
  - CEREBROVASCULAR ACCIDENT [None]
  - DEEP VEIN THROMBOSIS [None]
  - DEPRESSION [None]
  - EMOTIONAL DISORDER [None]
  - HYPERTENSION [None]
  - MYOCARDIAL INFARCTION [None]
  - PULMONARY EMBOLISM [None]
  - RENAL FAILURE [None]
  - THROMBOSIS [None]
